FAERS Safety Report 7104608-4 (Version None)
Quarter: 2010Q4

REPORT INFORMATION
  Report Type: 
  Country: None (occurrence: None)
  Receive Date: 20101109
  Receipt Date: 20101101
  Transmission Date: 20110411
  Serious: Yes (Hospitalization, Other)
  Sender: FDA-Public Use
  Company Number: 2010060018

PATIENT
  Age: 40 Year
  Sex: Male
  Weight: 106.5953 kg

DRUGS (9)
  1. EDLUAR [Suspect]
     Indication: INITIAL INSOMNIA
     Dosage: 10 MG, Q HS, AS NEEDED, SUBLINGUAL
     Route: 060
     Dates: start: 20100501, end: 20100602
  2. EDLUAR [Suspect]
     Indication: MIDDLE INSOMNIA
     Dosage: 10 MG, Q HS, AS NEEDED, SUBLINGUAL
     Route: 060
     Dates: start: 20100501, end: 20100602
  3. ZOLPIDEM [Suspect]
     Indication: INSOMNIA
     Dosage: 10 MG, Q HS, AS NEEDED, ORAL
     Route: 048
     Dates: start: 20080901, end: 20100602
  4. ZOLPIDEM [Suspect]
     Indication: MIDDLE INSOMNIA
     Dosage: 10 MG, Q HS, AS NEEDED, ORAL
     Route: 048
     Dates: start: 20080901, end: 20100602
  5. CARISOPRODOL [Suspect]
     Indication: MUSCLE RELAXANT THERAPY
     Dosage: 1050 MG (350 MG, 3 TIMES DAILY, AS NEEDED, ORAL
     Route: 048
     Dates: start: 20080401, end: 20100602
  6. HYDROCODONE [Suspect]
     Indication: BACK PAIN
     Dosage: 10/325 (4 TABLETS DAILY AS NEEDED), ORAL
     Route: 048
     Dates: start: 20060101, end: 20100602
  7. AMITRIPTYLINE [Suspect]
     Indication: BACK PAIN
     Dosage: 50 MG, DAILY, ORAL
     Route: 048
     Dates: start: 20060101, end: 20100602
  8. AMITRIPTYLINE [Suspect]
     Indication: SLEEP DISORDER
     Dosage: 50 MG, DAILY, ORAL
     Route: 048
     Dates: start: 20060101, end: 20100602
  9. PRISTIQ [Concomitant]

REACTIONS (10)
  - AMNESIA [None]
  - BACK PAIN [None]
  - DRUG INEFFECTIVE [None]
  - HALLUCINATION [None]
  - INCORRECT DOSE ADMINISTERED [None]
  - LOSS OF CONSCIOUSNESS [None]
  - NECK PAIN [None]
  - ROAD TRAFFIC ACCIDENT [None]
  - SOMNOLENCE [None]
  - UNRESPONSIVE TO STIMULI [None]
